FAERS Safety Report 5346716-4 (Version None)
Quarter: 2007Q2

REPORT INFORMATION
  Report Type: 
  Country: None (occurrence: None)
  Receive Date: 20070604
  Receipt Date: 20070518
  Transmission Date: 20071010
  Serious: Yes (Other)
  Sender: FDA-Public Use
  Company Number: 2007JP001009

PATIENT
  Age: 80 Year
  Sex: Female
  Weight: 43 kg

DRUGS (13)
  1. PROGRAF [Suspect]
     Dates: start: 20061130
  2. EPREX [Suspect]
     Indication: NEPHROGENIC ANAEMIA
     Dosage: SEE IMAGE
     Route: 058
     Dates: start: 20050324, end: 20060329
  3. EPREX [Suspect]
     Indication: NEPHROGENIC ANAEMIA
     Dosage: SEE IMAGE
     Route: 058
     Dates: start: 20060330, end: 20060605
  4. EPREX [Suspect]
     Indication: NEPHROGENIC ANAEMIA
     Dosage: SEE IMAGE
     Route: 058
     Dates: start: 20060606, end: 20060810
  5. CORTICOSTEROID NOS (CORTICOSTEROID NOS) FORMULATION UNKNOWN [Suspect]
     Dates: start: 20060823
  6. LASIX (FUROSEMIDE) FORMULATION UNKNOWN [Concomitant]
  7. FOLIC ACID (FOLIC ACID) FORMULATION UNKNOWN [Concomitant]
  8. ATENOLOL (ATENOLOL) FORMULATION UNKNOWN [Concomitant]
  9. APRESOLINE (HYDRALAZINE HYDROCHLORIDE) FORMULATION UNKNOWN [Concomitant]
  10. SUPRALIP (FENOFIBRATE) FORMULATION UNKNOWN [Concomitant]
  11. NORVASC (AMLODIPINE BESILATE) FORMULATION UNKNOWN [Concomitant]
  12. CALCIUM CARBONATE FORMULATION UNKNOWN [Concomitant]
  13. SODAMINT (SODIUM BICARBONATE) FORMULATION UNKNOWN [Concomitant]

REACTIONS (5)
  - ANTI-ERYTHROPOIETIN ANTIBODY POSITIVE [None]
  - APLASIA PURE RED CELL [None]
  - DRUG INEFFECTIVE [None]
  - NEUTRALISING ANTIBODIES POSITIVE [None]
  - THERAPEUTIC RESPONSE DECREASED [None]
